FAERS Safety Report 18358059 (Version 1)
Quarter: 2020Q4

REPORT INFORMATION
  Report Type: Report from Study
  Country: None (occurrence: TR)
  Receive Date: 20201007
  Receipt Date: 20201007
  Transmission Date: 20210114
  Serious: Yes (Hospitalization, Other)
  Sender: FDA-Public Use
  Company Number: TR-ABBVIE-20K-161-3591271-00

PATIENT
  Age: 70 Year
  Sex: Male
  Weight: 85 kg

DRUGS (3)
  1. NOVASOURCE GI CONTROL [Concomitant]
     Indication: MALNUTRITION
     Route: 050
     Dates: start: 20200905
  2. DUODOPA [Suspect]
     Active Substance: CARBIDOPA\LEVODOPA
  3. DUODOPA [Suspect]
     Active Substance: CARBIDOPA\LEVODOPA
     Indication: PARKINSON^S DISEASE
     Dosage: MORNING DOSE (ML): 2.50 CONTINUOUS DOSE (ML): 1.40 EXTRA DOSE (ML): 0.50
     Route: 050
     Dates: start: 20200930

REACTIONS (2)
  - Oxygen saturation decreased [Recovered/Resolved]
  - Procedural complication [Unknown]

NARRATIVE: CASE EVENT DATE: 20200930
